FAERS Safety Report 5995125-3 (Version None)
Quarter: 2008Q4

REPORT INFORMATION
  Report Type: 
  Country: None (occurrence: None)
  Receive Date: 20081212
  Receipt Date: 20081209
  Transmission Date: 20090506
  Serious: Yes (Death, Other)
  Sender: FDA-Public Use
  Company Number: PHBS2008CN06513

PATIENT
  Age: 50 Year
  Sex: Female

DRUGS (4)
  1. CYCLOSPORINE [Suspect]
     Indication: RENAL TRANSPLANT
  2. PREDNISONE TAB [Suspect]
     Indication: RENAL TRANSPLANT
  3. CELLCEPT [Suspect]
     Indication: RENAL TRANSPLANT
  4. DRUGS FOR TREATMENT OF TUBERCULOSIS [Concomitant]

REACTIONS (18)
  - BLOOD ELECTROLYTES INCREASED [None]
  - COMA [None]
  - DIZZINESS [None]
  - ENCEPHALITIS VIRAL [None]
  - GAIT DISTURBANCE [None]
  - GRAND MAL CONVULSION [None]
  - HERPES SIMPLEX [None]
  - HERPES ZOSTER [None]
  - HYPOAESTHESIA FACIAL [None]
  - LUNG INFECTION [None]
  - NUCHAL RIGIDITY [None]
  - NYSTAGMUS [None]
  - PLEURAL ADHESION [None]
  - PLEURAL FIBROSIS [None]
  - PYREXIA [None]
  - TUBERCULOSIS OF CENTRAL NERVOUS SYSTEM [None]
  - TUBERCULOUS PLEURISY [None]
  - VOMITING [None]
